FAERS Safety Report 11776528 (Version 2)
Quarter: 2015Q4

REPORT INFORMATION
  Report Type: Spontaneous
  Country: US (occurrence: US)
  Receive Date: 20151125
  Receipt Date: 20151202
  Transmission Date: 20160304
  Serious: Yes (Other)
  Sender: FDA-Public Use
  Company Number: US-ABBVIE-15K-163-1505197-00

PATIENT
  Age: 42 Year
  Sex: Male

DRUGS (1)
  1. HUMIRA [Suspect]
     Active Substance: ADALIMUMAB
     Indication: PSORIASIS
     Route: 058
     Dates: end: 201508

REACTIONS (3)
  - Red blood cells urine positive [Unknown]
  - Bladder cancer [Not Recovered/Not Resolved]
  - Red blood cells urine positive [Recovered/Resolved]

NARRATIVE: CASE EVENT DATE: 201306
